FAERS Safety Report 7245326-1 (Version None)
Quarter: 2011Q1

REPORT INFORMATION
  Report Type: 
  Country: None (occurrence: None)
  Receive Date: 20110126
  Receipt Date: 20110121
  Transmission Date: 20110831
  Serious: Yes (Death, Hospitalization)
  Sender: FDA-Public Use
  Company Number: JP-SANOFI-AVENTIS-2011SA004234

PATIENT
  Age: 62 Year
  Sex: Male

DRUGS (8)
  1. 5-FU [Suspect]
     Route: 041
     Dates: start: 20101112, end: 20101112
  2. CALCIUM LEVOFOLINATE [Suspect]
     Indication: COLON CANCER METASTATIC
     Route: 041
     Dates: start: 20100728, end: 20100728
  3. CALCIUM LEVOFOLINATE [Suspect]
     Route: 041
     Dates: start: 20101112, end: 20101112
  4. AVASTIN [Suspect]
     Route: 041
     Dates: start: 20101112, end: 20101112
  5. 5-FU [Suspect]
     Indication: COLON CANCER METASTATIC
     Route: 041
     Dates: start: 20100728, end: 20100728
  6. ELPLAT [Suspect]
     Indication: COLON CANCER METASTATIC
     Route: 041
     Dates: start: 20100728, end: 20100728
  7. ELPLAT [Suspect]
     Route: 041
     Dates: start: 20101112, end: 20101112
  8. AVASTIN [Suspect]
     Indication: COLON CANCER METASTATIC
     Route: 041
     Dates: start: 20100728, end: 20100728

REACTIONS (7)
  - CYANOSIS [None]
  - ARTERIAL THROMBOSIS LIMB [None]
  - DISSEMINATED INTRAVASCULAR COAGULATION [None]
  - NAUSEA [None]
  - SEPSIS [None]
  - MULTI-ORGAN FAILURE [None]
  - INTESTINAL OBSTRUCTION [None]
